FAERS Safety Report 21445949 (Version 1)
Quarter: 2022Q4

REPORT INFORMATION
  Report Type: Report from Study
  Country: CA (occurrence: CA)
  Receive Date: 20221012
  Receipt Date: 20221012
  Transmission Date: 20230112
  Serious: Yes (Other)
  Sender: FDA-Public Use
  Company Number: CA-NOVARTISPH-NVSC2022CA226678

PATIENT
  Sex: Male

DRUGS (1)
  1. METHOTREXATE [Suspect]
     Active Substance: METHOTREXATE
     Indication: Product used for unknown indication
     Dosage: UNK
     Route: 058
     Dates: start: 2020, end: 2020

REACTIONS (7)
  - Diabetes mellitus [Unknown]
  - Blood cholesterol abnormal [Unknown]
  - Psoriasis [Unknown]
  - Sexual dysfunction [Unknown]
  - Emotional distress [Unknown]
  - Pruritus [Unknown]
  - Pain of skin [Unknown]

NARRATIVE: CASE EVENT DATE: 20200101
